FAERS Safety Report 11688901 (Version 1)
Quarter: 2015Q4

REPORT INFORMATION
  Report Type: Spontaneous
  Country: US (occurrence: None)
  Receive Date: 20151030
  Receipt Date: 20151030
  Transmission Date: 20160304
  Serious: Yes (Life-Threatening, Hospitalization, Disabling)
  Sender: FDA-Public Use
  Company Number: None

PATIENT
  Age: 56 Year
  Sex: Female
  Weight: 76 kg

DRUGS (9)
  1. DOFETILIDE [Concomitant]
     Active Substance: DOFETILIDE
  2. METOPROLOL [Concomitant]
     Active Substance: METOPROLOL
  3. MVI [Concomitant]
     Active Substance: VITAMINS
  4. XARELTO [Suspect]
     Active Substance: RIVAROXABAN
     Indication: ATRIAL FIBRILLATION
     Route: 048
     Dates: start: 20150815, end: 20150901
  5. PANTOPRAZOLE [Concomitant]
     Active Substance: PANTOPRAZOLE SODIUM
  6. VITAMIN E [Concomitant]
     Active Substance: .ALPHA.-TOCOPHEROL
  7. CALCIUM  + VITAMIN D [Concomitant]
     Active Substance: CALCIUM\VITAMIN D
  8. K-DUR [Concomitant]
     Active Substance: POTASSIUM CHLORIDE
  9. VITAMIN B COMPLEX [Concomitant]
     Active Substance: CYANOCOBALAMIN\DEXPANTHENOL\NIACINAMIDE\PYRIDOXINE HYDROCHLORIDE\RIBOFLAVIN 5^-PHOSPHATE SODIUM\THIAMINE HYDROCHLORIDE\VITAMIN B COMPLEX

REACTIONS (2)
  - Hypoaesthesia [None]
  - Haemorrhage intracranial [None]

NARRATIVE: CASE EVENT DATE: 20150901
